FAERS Safety Report 7215038-9 (Version None)
Quarter: 2011Q1

REPORT INFORMATION
  Report Type: 
  Country: None (occurrence: None)
  Receive Date: 20110107
  Receipt Date: 20100719
  Transmission Date: 20110831
  Serious: No
  Sender: FDA-Public Use
  Company Number: A0871152A

PATIENT
  Sex: Female

DRUGS (2)
  1. LOVAZA [Suspect]
     Dosage: 1G TWICE PER DAY
     Route: 048
     Dates: start: 20090101, end: 20100716
  2. NO CONCURRENT MEDICATION [Concomitant]

REACTIONS (7)
  - ABNORMAL BEHAVIOUR [None]
  - THERAPEUTIC RESPONSE UNEXPECTED [None]
  - ANGER [None]
  - ANXIETY [None]
  - DEPRESSION [None]
  - DYSPNOEA [None]
  - NAUSEA [None]
